FAERS Safety Report 8528409-5 (Version None)
Quarter: 2012Q3

REPORT INFORMATION
  Report Type: 
  Country: None (occurrence: None)
  Receive Date: 20120722
  Receipt Date: 20120717
  Transmission Date: 20120928
  Serious: Yes (Life-Threatening, Other)
  Sender: FDA-Public Use
  Company Number: PHHY2012CH061567

PATIENT
  Age: 87 Year
  Sex: Male
  Weight: 86 kg

DRUGS (6)
  1. JANUMET [Concomitant]
     Indication: TYPE 2 DIABETES MELLITUS
     Dosage: 1000 MG, QD
     Route: 048
  2. BALDRIAN-DISPERT [Concomitant]
     Indication: SLEEP DISORDER
     Route: 048
  3. ALLOPURINOL [Suspect]
     Indication: GOUT
     Dosage: 1 DF, DAILY DOSE
     Route: 048
     Dates: end: 20120601
  4. MARCUMAR [Concomitant]
     Indication: ATRIAL FIBRILLATION
     Route: 048
  5. SORTIS ^GOEDECKE^ [Concomitant]
     Dosage: 1 DF, QD
     Route: 048
  6. TORSEMIDE [Concomitant]
     Indication: HYPERTENSIVE HEART DISEASE
     Dosage: 1 DF, QD
     Route: 048

REACTIONS (7)
  - CONJUNCTIVITIS [None]
  - INFECTION [None]
  - SKIN ULCER [None]
  - RENAL FAILURE [None]
  - AGRANULOCYTOSIS [None]
  - NEUTROPENIA [None]
  - GOUTY TOPHUS [None]
